FAERS Safety Report 19080256 (Version 1)
Quarter: 2021Q1

REPORT INFORMATION
  Report Type: Spontaneous
  Country: PT (occurrence: PT)
  Receive Date: 20210331
  Receipt Date: 20210331
  Transmission Date: 20210420
  Serious: Yes (Death, Hospitalization, Other)
  Sender: FDA-Public Use
  Company Number: PT-VALIDUS PHARMACEUTICALS LLC-PT-2021VAL000227

PATIENT
  Age: 73 Year
  Sex: Male

DRUGS (9)
  1. LENALIDOMIDE [Concomitant]
     Active Substance: LENALIDOMIDE
     Indication: PRODUCT USED FOR UNKNOWN INDICATION
     Route: 065
  2. MELPHALAN. [Concomitant]
     Active Substance: MELPHALAN
     Indication: PRODUCT USED FOR UNKNOWN INDICATION
     Route: 065
  3. DEXAMETHASONE. [Concomitant]
     Active Substance: DEXAMETHASONE
     Indication: PRODUCT USED FOR UNKNOWN INDICATION
     Route: 065
  4. FUROSEMIDE. [Suspect]
     Active Substance: FUROSEMIDE
     Indication: CHRONIC KIDNEY DISEASE
     Dosage: 200 MG, QD
     Route: 065
  5. FLUCLOXACILLIN [Suspect]
     Active Substance: FLUCLOXACILLIN
     Indication: PRODUCT USED FOR UNKNOWN INDICATION
     Route: 065
  6. SULFAMETHOXAZOLE AND TRIMETHOPRIM [Concomitant]
     Active Substance: SULFAMETHOXAZOLE\TRIMETHOPRIM
     Indication: PRODUCT USED FOR UNKNOWN INDICATION
     Route: 065
  7. CEFTRIAXONE SODIUM. [Suspect]
     Active Substance: CEFTRIAXONE SODIUM
     Indication: ARTHRITIS BACTERIAL
     Route: 065
  8. CYCLOPHOSPHAMIDE. [Concomitant]
     Active Substance: CYCLOPHOSPHAMIDE
     Indication: PRODUCT USED FOR UNKNOWN INDICATION
     Route: 065
  9. HYDROXYUREA. [Concomitant]
     Active Substance: HYDROXYUREA
     Indication: PRODUCT USED FOR UNKNOWN INDICATION
     Route: 065

REACTIONS (30)
  - Chronic respiratory disease [Unknown]
  - Diastolic dysfunction [Unknown]
  - Condition aggravated [Unknown]
  - Chronic kidney disease [Unknown]
  - Polyarthritis [Unknown]
  - Off label use [Unknown]
  - Septic shock [Fatal]
  - Drug resistance [Unknown]
  - Hypoaesthesia [Unknown]
  - Skin fragility [Unknown]
  - Radiculopathy [Unknown]
  - Bursitis [Not Recovered/Not Resolved]
  - Flushing [Not Recovered/Not Resolved]
  - Periarticular disorder [Unknown]
  - Haemangioma [Unknown]
  - Bone lesion [Unknown]
  - Oedema peripheral [Not Recovered/Not Resolved]
  - Pyrexia [Unknown]
  - Neutrophilia [Unknown]
  - POEMS syndrome [Not Recovered/Not Resolved]
  - Oedema [Unknown]
  - Drug ineffective [Unknown]
  - Erysipelas [Not Recovered/Not Resolved]
  - Fatigue [Unknown]
  - Arthritis bacterial [Unknown]
  - C-reactive protein increased [Unknown]
  - Glomerular filtration rate decreased [Unknown]
  - Dyspnoea [Unknown]
  - Leukocytosis [Unknown]
  - Periarthritis [Not Recovered/Not Resolved]
